FAERS Safety Report 5221794-1 (Version None)
Quarter: 2007Q1

REPORT INFORMATION
  Report Type: 
  Country: None (occurrence: None)
  Receive Date: 20070129
  Receipt Date: 20070116
  Transmission Date: 20070707
  Serious: Yes (Hospitalization)
  Sender: FDA-Public Use
  Company Number: US-JNJFOC-20070104495

PATIENT
  Sex: Female

DRUGS (7)
  1. DURAGESIC-100 [Suspect]
     Indication: PAIN MANAGEMENT
  2. ACCUPRIL [Concomitant]
     Indication: BLOOD PRESSURE
     Route: 048
  3. ATENOLOL [Concomitant]
     Indication: BLOOD PRESSURE
     Route: 048
  4. THYROID TAB [Concomitant]
     Indication: THYROID DISORDER
  5. TYLENOL W/ CODEINE [Concomitant]
     Indication: PAIN
     Route: 048
  6. STOOL SOFTENER [Concomitant]
     Indication: CONSTIPATION
     Route: 048
  7. ARTHROTEC [Concomitant]
     Indication: ANTIINFLAMMATORY THERAPY
     Route: 048

REACTIONS (7)
  - APPLICATION SITE DISCOLOURATION [None]
  - APPLICATION SITE IRRITATION [None]
  - APPLICATION SITE PRURITUS [None]
  - BLOOD PRESSURE INCREASED [None]
  - HERPES ZOSTER [None]
  - INCORRECT DRUG ADMINISTRATION DURATION [None]
  - PAIN [None]
